FAERS Safety Report 12719869 (Version 1)
Quarter: 2016Q3

REPORT INFORMATION
  Report Type: Spontaneous
  Country: US (occurrence: US)
  Receive Date: 20160907
  Receipt Date: 20160907
  Transmission Date: 20161109
  Serious: Yes (Other)
  Sender: FDA-Public Use
  Company Number: US-JNJFOC-20151210913

PATIENT
  Age: 45 Year
  Sex: Female
  Weight: 87.54 kg

DRUGS (13)
  1. LEVAQUIN [Suspect]
     Active Substance: LEVOFLOXACIN
     Indication: URINARY TRACT INFECTION
     Route: 048
     Dates: start: 20090706, end: 20090711
  2. LEVAQUIN [Suspect]
     Active Substance: LEVOFLOXACIN
     Indication: UTERINE INFECTION
     Route: 048
     Dates: start: 20090706, end: 20090711
  3. LEVAQUIN [Suspect]
     Active Substance: LEVOFLOXACIN
     Indication: UTERINE LEIOMYOMA
     Route: 048
     Dates: start: 20031105, end: 20031110
  4. CIPROFLOXACIN. [Suspect]
     Active Substance: CIPROFLOXACIN
     Indication: PNEUMONIA
     Route: 048
     Dates: start: 20090704, end: 20090714
  5. LEVAQUIN [Suspect]
     Active Substance: LEVOFLOXACIN
     Indication: URINARY TRACT INFECTION
     Route: 048
     Dates: start: 20031105, end: 20031110
  6. LEVAQUIN [Suspect]
     Active Substance: LEVOFLOXACIN
     Indication: UTERINE LEIOMYOMA
     Route: 048
     Dates: start: 20110102, end: 20110109
  7. CIPROFLOXACIN. [Suspect]
     Active Substance: CIPROFLOXACIN
     Indication: UTERINE LEIOMYOMA
     Route: 048
     Dates: start: 20090704, end: 20090714
  8. CIPROFLOXACIN. [Suspect]
     Active Substance: CIPROFLOXACIN
     Indication: PNEUMONIA
     Route: 048
     Dates: start: 20080815, end: 20080825
  9. LEVAQUIN [Suspect]
     Active Substance: LEVOFLOXACIN
     Indication: UTERINE LEIOMYOMA
     Route: 048
     Dates: start: 20090706, end: 20090711
  10. CIPROFLOXACIN. [Suspect]
     Active Substance: CIPROFLOXACIN
     Indication: UTERINE LEIOMYOMA
     Route: 048
     Dates: start: 20080815, end: 20080825
  11. LEVAQUIN [Suspect]
     Active Substance: LEVOFLOXACIN
     Indication: URINARY TRACT INFECTION
     Route: 048
     Dates: start: 20110102, end: 20110109
  12. LEVAQUIN [Suspect]
     Active Substance: LEVOFLOXACIN
     Indication: UTERINE INFECTION
     Route: 048
     Dates: start: 20110102, end: 20110109
  13. LEVAQUIN [Suspect]
     Active Substance: LEVOFLOXACIN
     Indication: UTERINE INFECTION
     Route: 048
     Dates: start: 20031105, end: 20031110

REACTIONS (1)
  - Neuropathy peripheral [Not Recovered/Not Resolved]

NARRATIVE: CASE EVENT DATE: 201101
